FAERS Safety Report 6051323-4 (Version None)
Quarter: 2009Q1

REPORT INFORMATION
  Report Type: 
  Country: None (occurrence: None)
  Receive Date: 20090126
  Receipt Date: 20090126
  Transmission Date: 20090719
  Serious: Yes (Hospitalization, Other)
  Sender: FDA-Public Use
  Company Number: US-PFIZER INC-2008063710

PATIENT
  Sex: Female
  Weight: 93.878 kg

DRUGS (7)
  1. LYRICA [Suspect]
     Indication: FIBROMYALGIA
     Dosage: 50 MG, 1X/DAY
     Route: 048
     Dates: start: 20080619, end: 20080701
  2. ADIPEX [Suspect]
  3. CHONDROITIN/GLUCOSAMINE [Concomitant]
     Indication: ARTHRITIS
     Route: 048
  4. LORTAB [Concomitant]
     Dosage: UNK MG, AS NEEDED
     Route: 048
     Dates: start: 20030101
  5. SOMA [Concomitant]
     Dosage: 350 MG, AS NEEDED
     Route: 048
     Dates: start: 20070101
  6. ALL OTHER THERAPEUTIC PRODUCTS [Concomitant]
  7. PEPCID [Concomitant]
     Dosage: 20 MG, 2X/DAY
     Route: 048

REACTIONS (11)
  - ASTHENIA [None]
  - BIPOLAR DISORDER [None]
  - CARDIAC FAILURE CONGESTIVE [None]
  - CHEST PAIN [None]
  - FEAR OF DEATH [None]
  - MALAISE [None]
  - PAIN IN EXTREMITY [None]
  - PERICARDIAL EFFUSION [None]
  - PNEUMONIA [None]
  - PULMONARY OEDEMA [None]
  - UNEVALUABLE EVENT [None]
